FAERS Safety Report 19207287 (Version 4)
Quarter: 2022Q1

REPORT INFORMATION
  Report Type: Spontaneous
  Country: US (occurrence: US)
  Receive Date: 20210503
  Receipt Date: 20220119
  Transmission Date: 20220423
  Serious: Yes (Other)
  Sender: FDA-Public Use
  Company Number: US-PFIZER INC-2021130051

PATIENT
  Age: 79 Year
  Sex: Male

DRUGS (1)
  1. VYNDAMAX [Suspect]
     Active Substance: TAFAMIDIS
     Dosage: 61 MG

REACTIONS (15)
  - Arteriosclerosis coronary artery [Unknown]
  - Restrictive cardiomyopathy [Unknown]
  - COVID-19 [Unknown]
  - Fatigue [Unknown]
  - Chest discomfort [Unknown]
  - Breast swelling [Unknown]
  - Breast discomfort [Unknown]
  - Peripheral swelling [Unknown]
  - Limb discomfort [Unknown]
  - Sleep apnoea syndrome [Unknown]
  - Chronic left ventricular failure [Unknown]
  - Aortic valve disease [Unknown]
  - Atrial flutter [Unknown]
  - Hypertension [Unknown]
  - Arthralgia [Unknown]

NARRATIVE: CASE EVENT DATE: 20190801
